FAERS Safety Report 9231643 (Version 2)
Quarter: 2013Q4

REPORT INFORMATION
  Report Type: Report from Study
  Country: US (occurrence: US)
  Receive Date: 20130415
  Receipt Date: 20131128
  Transmission Date: 20140711
  Serious: Yes (Death)
  Sender: FDA-Public Use
  Company Number: US-ROCHE-1214202

PATIENT
  Age: 61 Year
  Sex: Female

DRUGS (2)
  1. AVASTIN [Suspect]
     Indication: BREAST CANCER METASTATIC
     Route: 042
     Dates: start: 20120619, end: 20121009
  2. AVASTIN [Suspect]
     Indication: BREAST CANCER

REACTIONS (9)
  - Pneumonia [Fatal]
  - Muscle spasms [Not Recovered/Not Resolved]
  - Productive cough [Not Recovered/Not Resolved]
  - Chest X-ray abnormal [Not Recovered/Not Resolved]
  - Pleural effusion [Not Recovered/Not Resolved]
  - Sternal fracture [Not Recovered/Not Resolved]
  - White blood cell count increased [Recovered/Resolved]
  - Constipation [Unknown]
  - Hypertension [Unknown]
